FAERS Safety Report 15469689 (Version 2)
Quarter: 2019Q1

REPORT INFORMATION
  Report Type: Spontaneous
  Country: US (occurrence: US)
  Receive Date: 20181005
  Receipt Date: 20190110
  Transmission Date: 20190417
  Serious: Yes (Other)
  Sender: FDA-Public Use
  Company Number: US-SA-2018SA275470

PATIENT
  Age: 51 Year
  Sex: Female
  Weight: 77.11 kg

DRUGS (12)
  1. NEULASTA [Concomitant]
     Active Substance: PEGFILGRASTIM
  2. ZOFRAN [Concomitant]
     Active Substance: ONDANSETRON HYDROCHLORIDE
  3. BENADRYL [Concomitant]
     Active Substance: DIPHENHYDRAMINE HYDROCHLORIDE
  4. SABADILLA [Concomitant]
     Dosage: UNK
     Dates: start: 19980101, end: 20101231
  5. TAMOXIFEN [Concomitant]
     Active Substance: TAMOXIFEN
     Dosage: UNK
     Dates: start: 20100810
  6. TAXOTERE [Suspect]
     Active Substance: DOCETAXEL
     Dosage: 100MG - 150MG, Q3W
     Route: 042
     Dates: start: 20100630, end: 20100630
  7. NEOSAR [Concomitant]
     Active Substance: CYCLOPHOSPHAMIDE
  8. TAXOTERE [Suspect]
     Active Substance: DOCETAXEL
     Indication: BREAST CANCER FEMALE
     Dosage: 100MG - 150MG, Q3W
     Route: 042
     Dates: start: 20100315, end: 20100315
  9. EFFEXOR [Concomitant]
     Active Substance: VENLAFAXINE HYDROCHLORIDE
     Dosage: UNK
     Dates: start: 19980101
  10. DOXORUBICIN [Concomitant]
     Active Substance: DOXORUBICIN
  11. EMEND [Concomitant]
     Active Substance: APREPITANT
  12. DECADRON [DEXAMETHASONE] [Concomitant]

REACTIONS (1)
  - Alopecia [Not Recovered/Not Resolved]

NARRATIVE: CASE EVENT DATE: 20101230
